FAERS Safety Report 4725824-2 (Version None)
Quarter: 2005Q3

REPORT INFORMATION
  Report Type: 
  Country: None (occurrence: None)
  Receive Date: 20050727
  Receipt Date: 20050718
  Transmission Date: 20060218
  Serious: Yes (Other)
  Sender: FDA-Public Use
  Company Number: 2005GB01389

PATIENT
  Age: 69 Year
  Sex: Female
  Weight: 69.9 kg

DRUGS (2)
  1. ATENOLOL [Suspect]
     Indication: HYPERTENSION
     Route: 048
     Dates: start: 19990101, end: 20040501
  2. BENDROFLUAZIDE [Suspect]
     Indication: HYPERTENSION
     Route: 048
     Dates: start: 20040601, end: 20040701

REACTIONS (1)
  - PSORIASIS [None]
